FAERS Safety Report 9303152 (Version 1)
Quarter: 2013Q2

REPORT INFORMATION
  Report Type: Spontaneous
  Country: FR (occurrence: FR)
  Receive Date: 20130522
  Receipt Date: 20130522
  Transmission Date: 20140414
  Serious: Yes (Other)
  Sender: FDA-Public Use
  Company Number: FR-JNJFOC-20130510529

PATIENT
  Age: 2 Year
  Sex: Male

DRUGS (7)
  1. FLUCONAZOLE [Suspect]
     Indication: FEBRILE NEUTROPENIA
     Dosage: HIGH DOSE
     Route: 065
  2. PREDNISONE [Suspect]
     Indication: LANGERHANS^ CELL HISTIOCYTOSIS
     Route: 065
  3. CYTARABINE [Suspect]
     Indication: LANGERHANS^ CELL HISTIOCYTOSIS
     Dosage: HIGH DOSE
     Route: 065
  4. COTRIMOXAZOLE [Suspect]
     Indication: PROPHYLAXIS
     Dosage: HIGH DOSE
     Route: 048
  5. PIPERACILLINE + TAZOBACTUM [Suspect]
     Indication: FEBRILE NEUTROPENIA
     Dosage: HIGH DOSE
     Route: 065
  6. AMIKACIN [Suspect]
     Indication: FEBRILE NEUTROPENIA
     Dosage: HIGH DOSE
     Route: 065
  7. 2-CHLORODEOXYADENOSINE [Suspect]

REACTIONS (5)
  - Device related infection [Recovered/Resolved]
  - Febrile neutropenia [Recovering/Resolving]
  - Langerhans^ cell histiocytosis [Unknown]
  - Mucosal inflammation [Unknown]
  - Off label use [Unknown]
